FAERS Safety Report 6546280-8 (Version None)
Quarter: 2010Q1

REPORT INFORMATION
  Report Type: 
  Country: None (occurrence: None)
  Receive Date: 20100114
  Receipt Date: 20090821
  Transmission Date: 20100710
  Serious: No
  Sender: FDA-Public Use
  Company Number: 2009BM000195

PATIENT
  Age: 21 Year
  Sex: Female
  Weight: 40.7 kg

DRUGS (1)
  1. KUVAN [Suspect]
     Indication: PHENYLKETONURIA
     Dosage: 20 MG/KG;QD;PO
     Route: 048
     Dates: start: 20090527

REACTIONS (1)
  - HEADACHE [None]
